FAERS Safety Report 14868165 (Version 1)
Quarter: 2018Q2

REPORT INFORMATION
  Report Type: Spontaneous
  Country: NL (occurrence: NL)
  Receive Date: 20180509
  Receipt Date: 20180509
  Transmission Date: 20180711
  Serious: Yes (Hospitalization, Other)
  Sender: FDA-Public Use
  Company Number: NL-TEVA-2018-NL-887545

PATIENT
  Age: 45 Year
  Sex: Male

DRUGS (1)
  1. LONQUEX 6 MG, OPLOSSING VOOR INJECTIE [Suspect]
     Active Substance: LIPEGFILGRASTIM
     Route: 058
     Dates: start: 20170915, end: 20180118

REACTIONS (1)
  - Respiratory tract infection [Recovered/Resolved]

NARRATIVE: CASE EVENT DATE: 201801
